APPROVED DRUG PRODUCT: TRIAMCINOLONE ACETONIDE
Active Ingredient: TRIAMCINOLONE ACETONIDE
Strength: 0.5%
Dosage Form/Route: OINTMENT;TOPICAL
Application: A040386 | Product #001
Applicant: SUN PHARMA CANADA INC
Approved: Jun 5, 2001 | RLD: No | RS: No | Type: DISCN